FAERS Safety Report 4867011-3 (Version None)
Quarter: 2005Q4

REPORT INFORMATION
  Report Type: 
  Country: None (occurrence: None)
  Receive Date: 20051222
  Receipt Date: 20051214
  Transmission Date: 20060501
  Serious: Yes (Other)
  Sender: FDA-Public Use
  Company Number: UKP05000416

PATIENT
  Age: 43 Year
  Sex: Female
  Weight: 66 kg

DRUGS (2)
  1. ACTONEL [Suspect]
     Indication: OSTEOPOROSIS
     Dosage: 35 MG, 1 / WEEK, ORAL
     Route: 048
     Dates: start: 20051021, end: 20051123
  2. VALPROATE SODIUM [Suspect]
     Indication: EPILEPSY
     Dosage: 1000 MG, ORAL
     Route: 048
     Dates: start: 19890101

REACTIONS (4)
  - DRUG INTERACTION [None]
  - DYSPHASIA [None]
  - FACIAL PALSY [None]
  - HEADACHE [None]
